FAERS Safety Report 20865491 (Version 1)
Quarter: 2022Q2

REPORT INFORMATION
  Report Type: Spontaneous
  Country: US (occurrence: US)
  Receive Date: 20220524
  Receipt Date: 20220524
  Transmission Date: 20220720
  Serious: No
  Sender: FDA-Public Use
  Company Number: US-BAUSCH-BL-2022-012369

PATIENT
  Sex: Female

DRUGS (5)
  1. LOTEMAX SM [Suspect]
     Active Substance: LOTEPREDNOL ETABONATE
     Indication: Product used for unknown indication
     Dosage: 1 DROP INTO THE LEFT EYE 4 TIMES DAILY FOR 1 WEEK
     Route: 047
  2. LOTEMAX SM [Suspect]
     Active Substance: LOTEPREDNOL ETABONATE
     Dosage: 1 DROP INTO THE LEFT EYE THREE TIMES DAILY FOR 1 WEEK
     Route: 047
  3. LOTEMAX SM [Suspect]
     Active Substance: LOTEPREDNOL ETABONATE
     Dosage: THEN 1 DROP INTO THE LEFT EYE TWICE DAILY FOR 1 WEEK THEN STOPPED
     Route: 047
  4. TOBRAMYCIN [Suspect]
     Active Substance: TOBRAMYCIN
     Indication: Product used for unknown indication
     Dosage: 1 DROP FOUR TIMES DAILY FOR 1 WEEK THEN STOPPED.
     Route: 065
  5. KETOROLAC [Suspect]
     Active Substance: KETOROLAC TROMETHAMINE
     Indication: Product used for unknown indication
     Route: 065

REACTIONS (1)
  - Photophobia [Unknown]

NARRATIVE: CASE EVENT DATE: 20220101
